FAERS Safety Report 5450873-9 (Version None)
Quarter: 2007Q3

REPORT INFORMATION
  Report Type: 
  Country: None (occurrence: None)
  Receive Date: 20070913
  Receipt Date: 20070906
  Transmission Date: 20080115
  Serious: Yes (Other)
  Sender: FDA-Public Use
  Company Number: PHEH2007US12125

PATIENT
  Sex: Female

DRUGS (1)
  1. HYDROCHLOROTHIAZIDE [Suspect]

REACTIONS (2)
  - ELECTROLYTE IMBALANCE [None]
  - MYOCARDIAL INFARCTION [None]
